FAERS Safety Report 19274911 (Version 1)
Quarter: 2021Q2

REPORT INFORMATION
  Report Type: Spontaneous
  Country: CN (occurrence: CN)
  Receive Date: 20210519
  Receipt Date: 20210519
  Transmission Date: 20210717
  Serious: Yes (Other)
  Sender: FDA-Public Use
  Company Number: CN-DRREDDYS-GPV/CHN/21/0135456

PATIENT
  Age: 81 Year
  Sex: Male
  Weight: 50 kg

DRUGS (4)
  1. OLANZAPINE. [Suspect]
     Active Substance: OLANZAPINE
     Indication: POOR QUALITY SLEEP
     Dosage: 1.250000MG,QD
     Route: 048
     Dates: start: 20210425, end: 20210505
  2. ESTAZOLAM TABLETS [Suspect]
     Active Substance: ESTAZOLAM
     Indication: POOR QUALITY SLEEP
     Dosage: 1.000000MG,QD
     Route: 048
     Dates: start: 20210419, end: 20210427
  3. OLANZAPINE. [Suspect]
     Active Substance: OLANZAPINE
     Indication: SEDATION
     Dosage: OLANZAPINE WAS INCREASED TO 2.5 MG QN PO
     Route: 048
     Dates: start: 20210505
  4. ESTAZOLAM TABLETS [Suspect]
     Active Substance: ESTAZOLAM
     Indication: SEDATION
     Dosage: 0.5 MG, QN PO
     Route: 048
     Dates: start: 20210427, end: 20210505

REACTIONS (1)
  - Granulocytopenia [Recovering/Resolving]

NARRATIVE: CASE EVENT DATE: 20210428
